FAERS Safety Report 10381067 (Version 1)
Quarter: 2014Q3

REPORT INFORMATION
  Report Type: Spontaneous
  Country: CH (occurrence: CH)
  Receive Date: 20140813
  Receipt Date: 20140813
  Transmission Date: 20150326
  Serious: Yes (Hospitalization)
  Sender: FDA-Public Use
  Company Number: CH-SA-2014SA108969

PATIENT
  Age: 62 Year
  Sex: Male

DRUGS (6)
  1. MEXILETINE [Concomitant]
     Active Substance: MEXILETINE
     Dosage: DOSE: 200 MG 1-0-1
     Dates: start: 198609
  2. ENALAPRIL [Suspect]
     Active Substance: ENALAPRIL
     Indication: CARDIAC FAILURE
     Dosage: HIGH DOSE
     Route: 065
     Dates: start: 198609, end: 198609
  3. METOLAZONE. [Suspect]
     Active Substance: METOLAZONE
     Indication: POLYURIA
     Route: 065
     Dates: start: 198609
  4. CAPTOPRIL. [Concomitant]
     Active Substance: CAPTOPRIL
     Dosage: DOSE: 25 MG, 1/2-0-1/2
     Dates: start: 198609
  5. ENALAPRIL [Suspect]
     Active Substance: ENALAPRIL
     Indication: CARDIAC FAILURE
     Dosage: HIGH DOSE
     Route: 065
     Dates: start: 198609, end: 198609
  6. FUROSEMIDE. [Suspect]
     Active Substance: FUROSEMIDE
     Indication: POLYURIA
     Route: 065
     Dates: start: 198609

REACTIONS (5)
  - Hypotension [Recovering/Resolving]
  - Blood creatinine increased [Recovering/Resolving]
  - Renal failure [Recovering/Resolving]
  - Oliguria [Recovered/Resolved]
  - Hypovolaemia [Recovered/Resolved]

NARRATIVE: CASE EVENT DATE: 198609
